FAERS Safety Report 7267630-3 (Version None)
Quarter: 2011Q1

REPORT INFORMATION
  Report Type: 
  Country: None (occurrence: None)
  Receive Date: 20110201
  Receipt Date: 20110126
  Transmission Date: 20110831
  Serious: No
  Sender: FDA-Public Use
  Company Number: US-TEVA-264874USA

PATIENT
  Sex: Female

DRUGS (1)
  1. ALBUTEROL SULFATE AUTOHALER [Suspect]
     Dosage: 4 DOSES
     Route: 055
     Dates: start: 20110101, end: 20110101

REACTIONS (2)
  - DYSPNOEA [None]
  - OROPHARYNGEAL SPASM [None]
